FAERS Safety Report 26116904 (Version 1)
Quarter: 2025Q4

REPORT INFORMATION
  Report Type: Spontaneous
  Country: US (occurrence: None)
  Receive Date: 20251202
  Receipt Date: 20251202
  Transmission Date: 20260118
  Serious: No
  Sender: FDA-CTU
  Company Number: None

PATIENT
  Age: 25 Year
  Sex: Female

DRUGS (1)
  1. MONISTAT 1 COMBINATION PACK [Suspect]
     Active Substance: MICONAZOLE NITRATE
     Indication: Fungal infection
     Dates: start: 20251202

REACTIONS (5)
  - Application site pain [None]
  - Application site pruritus [None]
  - Vulvovaginal pain [None]
  - Vulvovaginal swelling [None]
  - Product information content complaint [None]

NARRATIVE: CASE EVENT DATE: 20251202
